FAERS Safety Report 14263730 (Version 11)
Quarter: 2020Q1

REPORT INFORMATION
  Report Type: Spontaneous
  Country: GB (occurrence: GB)
  Receive Date: 20171208
  Receipt Date: 20200210
  Transmission Date: 20200409
  Serious: Yes (Other)
  Sender: FDA-Public Use
  Company Number: GB-PFIZER INC-2017519389

PATIENT
  Age: 63 Year
  Sex: Female
  Weight: 76 kg

DRUGS (17)
  1. MIDAZOLAM HYDROCHLORIDE. [Interacting]
     Active Substance: MIDAZOLAM HYDROCHLORIDE
     Indication: SEDATION
     Dosage: 1 MG, SINGLE
     Route: 042
     Dates: start: 20171031, end: 20171031
  2. TRANEXAMIC ACID. [Concomitant]
     Active Substance: TRANEXAMIC ACID
     Indication: HAEMORRHAGE PROPHYLAXIS
     Dosage: 1 G, SINGLE
     Dates: start: 20171031, end: 20171031
  3. MARCAIN HEAVY [Suspect]
     Active Substance: BUPIVACAINE HYDROCHLORIDE
     Indication: SPINAL ANAESTHESIA
     Dosage: 2.6 ML, SINGLE
     Route: 037
     Dates: start: 20171031, end: 20171031
  4. BUPIVACAINE. [Concomitant]
     Active Substance: BUPIVACAINE
     Indication: LOCAL ANAESTHESIA
     Dosage: 20 ML, UNK
     Route: 058
     Dates: start: 20171031, end: 20171031
  5. FENTANYL CITRATE. [Interacting]
     Active Substance: FENTANYL CITRATE
     Indication: SPINAL ANAESTHESIA
     Dosage: 20 UG, SINGLE
     Route: 037
     Dates: start: 20171031, end: 20171031
  6. FENTANYL. [Interacting]
     Active Substance: FENTANYL
     Dosage: 20 UG, SINGLE
     Route: 037
     Dates: start: 20171031, end: 20171031
  7. COCODAMOL [Interacting]
     Active Substance: ACETAMINOPHEN\CODEINE PHOSPHATE
     Dosage: 2 TABLETS (DF), FOUR TIMES DAILY
  8. PARACETAMOL [Concomitant]
     Active Substance: ACETAMINOPHEN
     Indication: PREMEDICATION
     Dosage: 1 G, SINGLE
     Route: 048
     Dates: start: 20171031, end: 20171031
  9. BUCCASTEM [Concomitant]
     Active Substance: PROCHLORPERAZINE MALEATE
     Dosage: 6 MG, UNK
     Route: 002
  10. CEFUROXIME. [Concomitant]
     Active Substance: CEFUROXIME
     Indication: INFECTION PROPHYLAXIS
     Dosage: 1.5 G, SINGLE
     Dates: start: 20171031, end: 20171031
  11. BISOXATINE [Concomitant]
     Dosage: 6 MG, UNK
     Route: 002
  12. FENTANYL. [Interacting]
     Active Substance: FENTANYL
     Indication: SPINAL ANAESTHESIA
     Dosage: 12 UG, SINGLE
     Route: 062
     Dates: start: 20171031, end: 20171031
  13. LONGTEC [Interacting]
     Active Substance: OXYCODONE HYDROCHLORIDE
     Indication: PAIN
     Dosage: 10 MG, ONCE DAILY
     Route: 048
  14. MIDAZOLAM HYDROCHLORIDE. [Suspect]
     Active Substance: MIDAZOLAM HYDROCHLORIDE
     Indication: SEIZURE
     Dosage: 4 MG, SINGLE
     Route: 042
     Dates: start: 20171031, end: 20171031
  15. ADRENALINE HCL [Concomitant]
     Active Substance: EPINEPHRINE HYDROCHLORIDE
     Indication: LOCAL ANAESTHESIA
     Dosage: 20 ML, UNK
     Route: 058
     Dates: start: 20171031, end: 20171031
  16. LONGTEC [Interacting]
     Active Substance: OXYCODONE HYDROCHLORIDE
     Indication: PREMEDICATION
     Dosage: 5 MG, SINGLE
     Route: 048
     Dates: start: 20171031, end: 20171031
  17. GABAPENTIN. [Concomitant]
     Active Substance: GABAPENTIN
     Indication: PREMEDICATION
     Dosage: 300 MG, SINGLE
     Route: 048
     Dates: start: 20171031, end: 20171031

REACTIONS (3)
  - Product use in unapproved indication [Unknown]
  - Drug interaction [Recovered/Resolved]
  - Hyperaesthesia [Recovered/Resolved]

NARRATIVE: CASE EVENT DATE: 20171031
